FAERS Safety Report 22389352 (Version 4)
Quarter: 2023Q2

REPORT INFORMATION
  Report Type: Spontaneous
  Country: ES (occurrence: ES)
  Receive Date: 20230531
  Receipt Date: 20230629
  Transmission Date: 20230721
  Serious: Yes (Other)
  Sender: FDA-Public Use
  Company Number: ES-BRISTOL-MYERS SQUIBB COMPANY-2023-075886

PATIENT
  Age: 72 Year
  Sex: Female

DRUGS (2)
  1. NIVOLUMAB [Suspect]
     Active Substance: NIVOLUMAB
     Indication: Renal cancer metastatic
     Dosage: DOSE: 217 MG/3 S?3 COMPLETE CYCLES
     Route: 042
     Dates: start: 20230317, end: 20230525
  2. IPILIMUMAB [Suspect]
     Active Substance: IPILIMUMAB
     Indication: Renal cancer metastatic
     Dosage: DOSE: 72 MG/3S?3 COMPLETE CYCLES
     Route: 042
     Dates: start: 20230317, end: 20230525

REACTIONS (2)
  - Optic neuritis [Recovering/Resolving]
  - Off label use [Unknown]

NARRATIVE: CASE EVENT DATE: 20230520
